FAERS Safety Report 5372005-8 (Version None)
Quarter: 2007Q2

REPORT INFORMATION
  Report Type: 
  Country: None (occurrence: None)
  Receive Date: 20070619
  Receipt Date: 20070403
  Transmission Date: 20071010
  Serious: No
  Sender: FDA-Public Use
  Company Number: 2006US002836

PATIENT
  Sex: Female

DRUGS (2)
  1. VESICARE [Suspect]
     Indication: HYPERTONIC BLADDER
     Dosage: 5 MG, , UID/QD, ORAL, 10 MG, UID/QD,  ORAL
     Route: 048
     Dates: start: 20060901
  2. VESICARE [Suspect]
     Indication: HYPERTONIC BLADDER
     Dosage: 5 MG, , UID/QD, ORAL, 10 MG, UID/QD,  ORAL
     Route: 048
     Dates: start: 20061206

REACTIONS (3)
  - DRY THROAT [None]
  - OEDEMA PERIPHERAL [None]
  - VISION BLURRED [None]
